FAERS Safety Report 6469438-5 (Version None)
Quarter: 2009Q4

REPORT INFORMATION
  Report Type: 
  Country: None (occurrence: None)
  Receive Date: 20091203
  Receipt Date: 20091125
  Transmission Date: 20100525
  Serious: Yes (Other)
  Sender: FDA-Public Use
  Company Number: CA-AMGEN-QUU376948

PATIENT
  Sex: Male
  Weight: 81.7 kg

DRUGS (1)
  1. ENBREL [Suspect]
     Indication: RHEUMATOID ARTHRITIS
     Route: 058
     Dates: start: 20040101

REACTIONS (3)
  - ANXIETY [None]
  - BREATH SOUNDS ABNORMAL [None]
  - RECTAL HAEMORRHAGE [None]
